FAERS Safety Report 5947398-0 (Version None)
Quarter: 2008Q4

REPORT INFORMATION
  Report Type: 
  Country: None (occurrence: None)
  Receive Date: 20081110
  Receipt Date: 20081029
  Transmission Date: 20090506
  Serious: Yes (Other)
  Sender: FDA-Public Use
  Company Number: JP-PFIZER INC-2008091904

PATIENT
  Age: 58 Year
  Sex: Male

DRUGS (3)
  1. VFEND [Suspect]
     Route: 042
  2. VFEND [Suspect]
     Route: 048
  3. ALL OTHER THERAPEUTIC PRODUCTS [Concomitant]

REACTIONS (2)
  - ALTERED STATE OF CONSCIOUSNESS [None]
  - RENAL IMPAIRMENT [None]
